FAERS Safety Report 19451322 (Version 4)
Quarter: 2021Q4

REPORT INFORMATION
  Report Type: Spontaneous
  Country: DE (occurrence: DE)
  Receive Date: 20210623
  Receipt Date: 20211012
  Transmission Date: 20220303
  Serious: Yes (Hospitalization)
  Sender: FDA-Public Use
  Company Number: DE-BIOGEN-2021BI01023398

PATIENT
  Age: 23 Year
  Sex: Female

DRUGS (3)
  1. TYSABRI [Suspect]
     Active Substance: NATALIZUMAB
     Indication: Relapsing-remitting multiple sclerosis
     Dosage: INFUSED OVER ONE HOUR
     Route: 042
     Dates: start: 202105
  2. TYSABRI [Suspect]
     Active Substance: NATALIZUMAB
     Route: 042
  3. TYSABRI [Suspect]
     Active Substance: NATALIZUMAB
     Route: 042
     Dates: start: 20210506, end: 20210825

REACTIONS (4)
  - Optic neuritis [Not Recovered/Not Resolved]
  - Prescribed underdose [Unknown]
  - Neutralising antibodies positive [Unknown]
  - Drug ineffective [Unknown]

NARRATIVE: CASE EVENT DATE: 20210601
